FAERS Safety Report 15832414 (Version 1)
Quarter: 2019Q1

REPORT INFORMATION
  Report Type: Spontaneous
  Country: HR (occurrence: HR)
  Receive Date: 20190116
  Receipt Date: 20190116
  Transmission Date: 20190417
  Serious: Yes (Other)
  Sender: FDA-Public Use
  Company Number: HR-TEVA-2019-HR-998491

PATIENT
  Age: 22 Year
  Sex: Male

DRUGS (1)
  1. CEFALEXIN ALKALOID [Suspect]
     Active Substance: CEPHALEXIN
     Dosage: 8 GRAM DAILY;
     Route: 048
     Dates: start: 20181104, end: 20181104

REACTIONS (2)
  - Suicide attempt [Unknown]
  - No adverse event [Unknown]

NARRATIVE: CASE EVENT DATE: 20181104
